FAERS Safety Report 24284298 (Version 1)
Quarter: 2024Q3

REPORT INFORMATION
  Report Type: Spontaneous
  Country: PL (occurrence: PL)
  Receive Date: 20240905
  Receipt Date: 20240905
  Transmission Date: 20241016
  Serious: Yes (Life-Threatening, Other)
  Sender: AUROBINDO
  Company Number: PL-URPL-1-1715-2020

PATIENT
  Age: 38 Year
  Sex: Female
  Weight: 60 kg

DRUGS (1)
  1. QUETIAPINE [Suspect]
     Active Substance: QUETIAPINE
     Indication: Product used for unknown indication
     Dosage: UNK (DOSE UNKNOWN)
     Route: 048
     Dates: start: 20200804

REACTIONS (5)
  - Suicide attempt [Recovered/Resolved]
  - Psychomotor retardation [Recovered/Resolved]
  - Dysarthria [Recovered/Resolved]
  - Depressed mood [Recovered/Resolved]
  - Somnolence [Recovered/Resolved]

NARRATIVE: CASE EVENT DATE: 20200804
